FAERS Safety Report 16541975 (Version 1)
Quarter: 2019Q3

REPORT INFORMATION
  Report Type: Spontaneous
  Country: US (occurrence: US)
  Receive Date: 20190708
  Receipt Date: 20190708
  Transmission Date: 20191004
  Serious: No
  Sender: FDA-Public Use
  Company Number: US-BAUSCH-BL-2019-018389

PATIENT
  Sex: Female

DRUGS (1)
  1. APLENZIN [Suspect]
     Active Substance: BUPROPION HYDROBROMIDE
     Indication: DEPRESSION
     Route: 048
     Dates: end: 20190621

REACTIONS (4)
  - Irritability [Unknown]
  - Fatigue [Unknown]
  - Feeling abnormal [Unknown]
  - Malaise [Unknown]
